FAERS Safety Report 20134738 (Version 1)
Quarter: 2021Q4

REPORT INFORMATION
  Report Type: Report from Study
  Country: US (occurrence: US)
  Receive Date: 20211201
  Receipt Date: 20211201
  Transmission Date: 20220303
  Serious: Yes (Hospitalization, Other)
  Sender: FDA-Public Use
  Company Number: US-REGENERON PHARMACEUTICALS, INC.-2019-16227

PATIENT

DRUGS (36)
  1. CEMIPLIMAB [Suspect]
     Active Substance: CEMIPLIMAB
     Indication: Glioblastoma
     Dosage: 350 MG, EVERY 3 WEEKS UNTIL DISEASE PROGRESSION
     Route: 042
     Dates: start: 20181120, end: 20181120
  2. CEMIPLIMAB [Suspect]
     Active Substance: CEMIPLIMAB
     Dosage: 350 MG, EVERY 3 WEEKS UNTIL DISEASE PROGRESSION
     Route: 042
     Dates: start: 20181211, end: 20181211
  3. CEMIPLIMAB [Suspect]
     Active Substance: CEMIPLIMAB
     Dosage: 350 MG, EVERY 3 WEEKS UNTIL DISEASE PROGRESSION
     Route: 042
     Dates: start: 20190102, end: 20190102
  4. INVESTIGATIONAL PRODUCT [Suspect]
     Active Substance: INVESTIGATIONAL PRODUCT
     Indication: Glioblastoma
     Dosage: EVERY 3 WEEKS TIMES 4 DOSE, THEN EVERY 9 WEEKS UNTIL DISEASE PROGRESSION (1ML)
     Route: 030
     Dates: start: 20181120, end: 20181120
  5. INVESTIGATIONAL PRODUCT [Suspect]
     Active Substance: INVESTIGATIONAL PRODUCT
     Dosage: EVERY 3 WEEKS TIMES 4 DOSE, THEN EVERY 9 WEEKS UNTIL DISEASE PROGRESSION (1ML)
     Route: 030
     Dates: start: 20181211, end: 20181211
  6. INVESTIGATIONAL PRODUCT [Suspect]
     Active Substance: INVESTIGATIONAL PRODUCT
     Dosage: EVERY 3 WEEKS TIMES 4 DOSE, THEN EVERY 9 WEEKS UNTIL DISEASE PROGRESSION (1ML)
     Route: 030
     Dates: start: 20190102, end: 20190102
  7. INVESTIGATIONAL PRODUCT [Suspect]
     Active Substance: INVESTIGATIONAL PRODUCT
     Dosage: EVERY 3 WEEKS TIMES 4 DOSE, THEN EVERY 9 WEEKS UNTIL DISEASE PROGRESSION (1ML)
     Route: 030
     Dates: start: 20190208
  8. ROCAKINOGENE SIFUPLASMID [Suspect]
     Active Substance: ROCAKINOGENE SIFUPLASMID
     Indication: Glioblastoma
     Dosage: EVERY 3 WEEKS TIMES 4 DOSE, THEN EVERY 9 WEEKS UNTIL DISEASE PROGRESSION (1ML)
     Route: 030
     Dates: start: 20181120, end: 20181120
  9. ROCAKINOGENE SIFUPLASMID [Suspect]
     Active Substance: ROCAKINOGENE SIFUPLASMID
     Dosage: EVERY 3 WEEKS TIMES 4 DOSE, THEN EVERY 9 WEEKS UNTIL DISEASE PROGRESSION (1ML)
     Route: 030
     Dates: start: 20181211, end: 20181211
  10. ROCAKINOGENE SIFUPLASMID [Suspect]
     Active Substance: ROCAKINOGENE SIFUPLASMID
     Dosage: EVERY 3 WEEKS TIMES 4 DOSE, THEN EVERY 9 WEEKS UNTIL DISEASE PROGRESSION (1ML)
     Dates: start: 20190102, end: 20190102
  11. ROCAKINOGENE SIFUPLASMID [Suspect]
     Active Substance: ROCAKINOGENE SIFUPLASMID
     Dosage: EVERY 3 WEEKS TIMES 4 DOSE, THEN EVERY 9 WEEKS UNTIL DISEASE PROGRESSION (1ML)
     Dates: start: 20190208
  12. ATOVAQUONE [Concomitant]
     Active Substance: ATOVAQUONE
     Indication: Antifungal prophylaxis
     Dosage: 750 MG/5 ML
     Dates: start: 20190102
  13. DECADRON                           /00016001/ [Concomitant]
     Indication: Prophylaxis
     Dosage: 2 MG (2MG, 1 IN 1 D)
     Route: 048
     Dates: start: 20181113, end: 20181118
  14. DECADRON                           /00016001/ [Concomitant]
     Indication: Rash maculo-papular
     Dosage: 1 MG (1 MG, 1 IN 1 D)
     Route: 048
     Dates: start: 20181119, end: 20181123
  15. DECADRON                           /00016001/ [Concomitant]
     Dosage: 0.5 MG (1 MG, 1 IN 2 D)
     Route: 048
     Dates: start: 20181124, end: 20181202
  16. DECADRON                           /00016001/ [Concomitant]
     Dosage: 16 MG (4 MG, 4 IN 1 D)
     Route: 048
     Dates: start: 20181219, end: 20190101
  17. DECADRON                           /00016001/ [Concomitant]
     Dosage: 12 MG (4 MG, 3 IN 1 D)
     Route: 048
     Dates: start: 20190102, end: 20190108
  18. DECADRON                           /00016001/ [Concomitant]
     Dosage: 8 MG (4 MG, 2 IN 1 D)
     Route: 048
     Dates: start: 20190109, end: 20190115
  19. DECADRON                           /00016001/ [Concomitant]
     Dosage: 4 MG (2 MG, 2 IN 1 D)
     Route: 048
     Dates: start: 20190116
  20. ALLOPURINOL [Concomitant]
     Active Substance: ALLOPURINOL
     Indication: Gout
     Dosage: 100 MG (100 MG, 1 IN 1 D)
     Route: 048
     Dates: start: 2016
  21. COLCHICINE [Concomitant]
     Active Substance: COLCHICINE
     Indication: Gout
     Dosage: 0.6 MG, AS REQUIRED
     Route: 048
     Dates: start: 20181011
  22. ENALAPRIL [Concomitant]
     Active Substance: ENALAPRIL
     Indication: Hypertension
     Dosage: 40 MG (20 MG, 2 IN 1 D)
     Route: 048
     Dates: start: 2016
  23. FLUTICASONE [Concomitant]
     Active Substance: FLUTICASONE
     Indication: Rhinitis prophylaxis
     Dosage: 2 DOSAGE FORMS (1 DOSAGE FORMS, 2 IN 1 D)
     Route: 045
     Dates: start: 2016
  24. METOPROLOL SUCCINATE [Concomitant]
     Active Substance: METOPROLOL SUCCINATE
     Indication: Hypertension
     Dosage: 100 MG (100 MG, 1 IN 1 D)
     Route: 048
     Dates: start: 2016
  25. NIFEDIPINE [Concomitant]
     Active Substance: NIFEDIPINE
     Indication: Hypertension
     Dosage: 90 MG (90 MG, 1 IN 1 D)
     Route: 048
     Dates: start: 2016
  26. PRAVASTATIN [Concomitant]
     Active Substance: PRAVASTATIN
     Indication: Hyperlipidaemia
     Dosage: AT BEDTIME (40 MG, 1 IN 1 D)
     Route: 048
     Dates: start: 2016
  27. SPIRONOLACTONE [Concomitant]
     Active Substance: SPIRONOLACTONE
     Indication: Hypertension
     Dosage: 25 MG 25 MG, 1 IN 1 D)
     Route: 048
     Dates: start: 2016
  28. ASPIRIN                            /00002701/ [Concomitant]
     Indication: Cardiovascular event prophylaxis
     Dosage: 81 MG (81 MG, 1 IN 1 D)
     Route: 048
     Dates: start: 20170803
  29. Q-10 CO-ENZYME [Concomitant]
     Indication: Supplementation therapy
     Dosage: 90 MG (30 MG, 3IN 1 D)
     Route: 048
     Dates: start: 20170803
  30. METHOTREXATE [Concomitant]
     Active Substance: METHOTREXATE
     Indication: Rheumatoid arthritis
     Dosage: 0.0571 ML (0.4 ML, 1 IN 1 WEEK)
     Route: 030
     Dates: start: 20180613
  31. THERAGRAN                          /07504101/ [Concomitant]
     Indication: Supplementation therapy
     Dosage: 1 DOSAGE FORMS (1 DOSAGE FORMS, 1 IN 1 D)
     Route: 048
     Dates: start: 2018
  32. FISH OIL [Concomitant]
     Active Substance: FISH OIL
     Indication: Supplementation therapy
     Dosage: 2 G (2 GM, 1 IN 1 D)
     Route: 048
     Dates: start: 20170803
  33. OMEPRAZOLE [Concomitant]
     Active Substance: OMEPRAZOLE
     Indication: Gastrointestinal disorder prophylaxis
     Dosage: 20 MG (20 MG, 1 IN 1 D)
     Route: 048
     Dates: start: 20181119
  34. ONDANSETRON [Concomitant]
     Active Substance: ONDANSETRON
     Indication: Prophylaxis of nausea and vomiting
     Dosage: 24 MG (8 MG, 3 IN 1 D)
     Route: 048
     Dates: start: 20181119
  35. TEMOZOLOMIDE [Concomitant]
     Active Substance: TEMOZOLOMIDE
     Indication: Glioblastoma
     Dosage: GRADE 3 RASH - HELD
     Dates: start: 20181204, end: 20181219
  36. RADIATION THERAPY [Concomitant]
     Active Substance: RADIATION THERAPY
     Indication: Glioblastoma
     Dosage: 40GY IN 15 FRACTIONS
     Dates: start: 20181204, end: 20181224

REACTIONS (1)
  - Immune-mediated hepatitis [Recovered/Resolved]

NARRATIVE: CASE EVENT DATE: 20190122
